FAERS Safety Report 8609236-7 (Version None)
Quarter: 2012Q3

REPORT INFORMATION
  Report Type: 
  Country: None (occurrence: None)
  Receive Date: 20120821
  Receipt Date: 20120813
  Transmission Date: 20120928
  Serious: Yes (Other)
  Sender: FDA-Public Use
  Company Number: US-CELGENEUS-163-21880-11101867

PATIENT
  Sex: Male

DRUGS (7)
  1. OMEPRAZOLE [Concomitant]
     Route: 065
     Dates: start: 20110921
  2. VIAGRA [Concomitant]
     Dosage: 100 MILLIGRAM
     Route: 048
     Dates: start: 20110921
  3. REVLIMID [Suspect]
     Dosage: 5 MILLIGRAM
     Route: 048
     Dates: start: 20100901
  4. CYCLOBENZAPRINE [Concomitant]
     Dosage: 10 MILLIGRAM
     Route: 048
     Dates: start: 20110921
  5. ASPIRIN [Concomitant]
     Dosage: 81 MILLIGRAM
     Route: 048
     Dates: start: 20110921
  6. M.V.I. [Concomitant]
     Indication: VITAMIN SUPPLEMENTATION
     Dosage: 20 MILLIGRAM
     Route: 048
     Dates: start: 20110921
  7. REVLIMID [Suspect]
     Indication: MYELODYSPLASTIC SYNDROME
     Dosage: 10 MILLIGRAM
     Route: 048
     Dates: start: 20100525

REACTIONS (3)
  - CONTUSION [None]
  - BLEEDING TIME PROLONGED [None]
  - THROMBOCYTOPENIA [None]
